FAERS Safety Report 12374744 (Version 1)
Quarter: 2016Q2

REPORT INFORMATION
  Report Type: Spontaneous
  Country: US (occurrence: None)
  Receive Date: 20160516
  Receipt Date: 20160516
  Transmission Date: 20160815
  Serious: No
  Sender: FDA-Public Use
  Company Number: None

PATIENT
  Age: 35 Year
  Sex: Male
  Weight: 145.15 kg

DRUGS (1)
  1. LEVOFLOXACIN 500 MG TAB ZYD, 500 MG [Suspect]
     Active Substance: LEVOFLOXACIN
     Indication: OTITIS MEDIA
     Route: 048
     Dates: start: 20160509, end: 20160512

REACTIONS (3)
  - Paranoia [None]
  - Heart rate increased [None]
  - Blood pressure increased [None]

NARRATIVE: CASE EVENT DATE: 20160510
